FAERS Safety Report 9731906 (Version 1)
Quarter: 2013Q4

REPORT INFORMATION
  Report Type: Spontaneous
  Country: ES (occurrence: ES)
  Receive Date: 20131205
  Receipt Date: 20131205
  Transmission Date: 20140711
  Serious: Yes (Other)
  Sender: FDA-Public Use
  Company Number: PHHY2013ES135583

PATIENT
  Age: 65 Year
  Sex: Male

DRUGS (1)
  1. TASIGNA [Suspect]
     Indication: CHRONIC MYELOID LEUKAEMIA
     Dosage: UNK

REACTIONS (4)
  - Pemphigus [Recovered/Resolved]
  - Skin erosion [Recovered/Resolved]
  - Scab [Recovered/Resolved]
  - Blister [Recovered/Resolved]
